FAERS Safety Report 13987997 (Version 3)
Quarter: 2017Q4

REPORT INFORMATION
  Report Type: Spontaneous
  Country: JP (occurrence: JP)
  Receive Date: 20170919
  Receipt Date: 20171026
  Transmission Date: 20180321
  Serious: Yes (Hospitalization)
  Sender: FDA-Public Use
  Company Number: JP-BRACCO-2017JP04274

PATIENT
  Age: 79 Year
  Sex: Male

DRUGS (7)
  1. CILOSTAZOL. [Concomitant]
     Active Substance: CILOSTAZOL
     Dosage: UNK
  2. TAKEPRON [Concomitant]
     Active Substance: LANSOPRAZOLE
     Dosage: 15 MG, UNK
     Dates: start: 201601
  3. NORVASC [Concomitant]
     Active Substance: AMLODIPINE BESYLATE
     Dosage: 5 MG, UNK
     Route: 013
     Dates: start: 201601
  4. IOPAMIRON [Suspect]
     Active Substance: IOPAMIDOL
     Indication: ANGIOGRAM CEREBRAL
     Dosage: 80 ML, SINGLE
     Route: 013
     Dates: start: 20160309, end: 20160309
  5. FEBUXOSTAT. [Concomitant]
     Active Substance: FEBUXOSTAT
     Dosage: 10 MG, UNK
     Dates: start: 201601
  6. BAYASPIRIN [Suspect]
     Active Substance: ASPIRIN
     Indication: CEREBRAL INFARCTION
     Dosage: 100 MG, UNK
     Route: 048
     Dates: start: 201601
  7. PLETAAL [Concomitant]
     Active Substance: CILOSTAZOL
     Dosage: 100 MG, UNK
     Dates: start: 201601

REACTIONS (1)
  - Contrast encephalopathy [Recovered/Resolved]

NARRATIVE: CASE EVENT DATE: 20160309
